FAERS Safety Report 5767499-X (Version None)
Quarter: 2008Q2

REPORT INFORMATION
  Report Type: 
  Country: None (occurrence: None)
  Receive Date: 20080612
  Receipt Date: 20080606
  Transmission Date: 20081010
  Serious: Yes (Hospitalization)
  Sender: FDA-Public Use
  Company Number: US-ELI_LILLY_AND_COMPANY-US200806001721

PATIENT
  Sex: Female

DRUGS (2)
  1. FORTEO [Suspect]
     Indication: OSTEOPOROSIS
     Dates: start: 20071220
  2. CALCIUM W/VITAMIN D NOS [Concomitant]

REACTIONS (3)
  - COAGULATION TIME PROLONGED [None]
  - INCREASED TENDENCY TO BRUISE [None]
  - PLATELET COUNT DECREASED [None]
